FAERS Safety Report 16538627 (Version 1)
Quarter: 2019Q3

REPORT INFORMATION
  Report Type: Spontaneous
  Country: US (occurrence: US)
  Receive Date: 20190708
  Receipt Date: 20190708
  Transmission Date: 20191004
  Serious: Yes (Other)
  Sender: FDA-Public Use
  Company Number: US-TEVA-2019-US-1072028

PATIENT
  Sex: Female

DRUGS (1)
  1. COPAXONE [Suspect]
     Active Substance: GLATIRAMER ACETATE
     Indication: MULTIPLE SCLEROSIS
     Dosage: FORM STRENGTH: UNKNOWN
     Route: 058

REACTIONS (8)
  - Tremor [Unknown]
  - Multiple sclerosis [Unknown]
  - Needle track marks [Unknown]
  - Injection site scar [Unknown]
  - Walking aid user [Unknown]
  - Scar [Unknown]
  - Incontinence [Unknown]
  - Wheelchair user [Unknown]
